FAERS Safety Report 12632220 (Version 2)
Quarter: 2016Q3

REPORT INFORMATION
  Report Type: Spontaneous
  Country: US (occurrence: US)
  Receive Date: 20160808
  Receipt Date: 20160808
  Transmission Date: 20161109
  Serious: No
  Sender: FDA-Public Use
  Company Number: US-BEH-2016062181

PATIENT
  Sex: Female
  Weight: 58 kg

DRUGS (25)
  1. NIFEDIPINE. [Concomitant]
     Active Substance: NIFEDIPINE
  2. METOPROLOL. [Concomitant]
     Active Substance: METOPROLOL
  3. CENTRUM SILVER [Concomitant]
     Active Substance: MINERALS\VITAMINS
  4. PULMICORT TURBUHALER [Concomitant]
     Active Substance: BUDESONIDE
  5. PREDNISONE. [Concomitant]
     Active Substance: PREDNISONE
  6. ALBUTEROL. [Concomitant]
     Active Substance: ALBUTEROL
  7. CALCIUM [Concomitant]
     Active Substance: CALCIUM
  8. LANTUS [Concomitant]
     Active Substance: INSULIN GLARGINE
  9. LASIX [Concomitant]
     Active Substance: FUROSEMIDE
  10. SYNTHROID [Concomitant]
     Active Substance: LEVOTHYROXINE SODIUM
  11. VITAMIN D [Concomitant]
     Active Substance: CHOLECALCIFEROL
  12. ZANTAC [Concomitant]
     Active Substance: RANITIDINE HYDROCHLORIDE
  13. OMEPRAZOLE. [Concomitant]
     Active Substance: OMEPRAZOLE
  14. ONDANSETRON [Concomitant]
     Active Substance: ONDANSETRON
  15. ASPIRIN. [Concomitant]
     Active Substance: ASPIRIN
  16. LISINOPRIL. [Concomitant]
     Active Substance: LISINOPRIL
  17. DIPHENHYDRAMINE. [Concomitant]
     Active Substance: DIPHENHYDRAMINE
  18. LMX [Concomitant]
     Active Substance: LIDOCAINE
  19. OXYGEN. [Concomitant]
     Active Substance: OXYGEN
  20. ACETAMINOPHEN. [Concomitant]
     Active Substance: ACETAMINOPHEN
  21. HIZENTRA [Suspect]
     Active Substance: HUMAN IMMUNOGLOBULIN G
     Route: 058
     Dates: start: 20130701
  22. MACROBID [Concomitant]
     Active Substance: NITROFURANTOIN\NITROFURANTOIN MONOHYDRATE
  23. NEURONTIN [Concomitant]
     Active Substance: GABAPENTIN
  24. IPRATROPIUM [Concomitant]
     Active Substance: IPRATROPIUM
  25. EPIPEN [Concomitant]
     Active Substance: EPINEPHRINE

REACTIONS (1)
  - Bronchitis [Unknown]
